FAERS Safety Report 9452466 (Version 1)
Quarter: 2013Q3

REPORT INFORMATION
  Report Type: Spontaneous
  Country: US (occurrence: None)
  Receive Date: 20130808
  Receipt Date: 20130808
  Transmission Date: 20140515
  Serious: Yes (Other)
  Sender: FDA-Public Use
  Company Number: None

PATIENT
  Age: 67 Year
  Sex: Female
  Weight: 77.11 kg

DRUGS (1)
  1. LIALDA [Suspect]
     Indication: COLITIS ULCERATIVE
     Dosage: 1 PILL, TWICE DAILY, TAKEN BY MOUTH.
     Route: 048
     Dates: start: 20130726, end: 20130729

REACTIONS (3)
  - Gout [None]
  - Diarrhoea [None]
  - Abdominal pain upper [None]
